FAERS Safety Report 4376062-7 (Version None)
Quarter: 2004Q2

REPORT INFORMATION
  Report Type: 
  Country: None (occurrence: None)
  Receive Date: 20040611
  Receipt Date: 20040603
  Transmission Date: 20050107
  Serious: Yes (Other)
  Sender: FDA-Public Use
  Company Number: 200414239US

PATIENT
  Sex: Male
  Weight: 86 kg

DRUGS (2)
  1. ALLEGRA [Suspect]
     Indication: MULTIPLE ALLERGIES
  2. COUMADIN [Concomitant]
     Dosage: DOSE: UNKNOWN

REACTIONS (1)
  - DYSURIA [None]
